FAERS Safety Report 10009419 (Version 4)
Quarter: 2014Q2

REPORT INFORMATION
  Report Type: Spontaneous
  Country: DE (occurrence: DE)
  Receive Date: 20140313
  Receipt Date: 20140423
  Transmission Date: 20141212
  Serious: Yes (Hospitalization, Other)
  Sender: FDA-Public Use
  Company Number: DE-GILEAD-2014-0096404

PATIENT
  Age: 68 Year
  Sex: Female

DRUGS (7)
  1. SOVALDI [Suspect]
     Indication: HEPATITIS C
     Dosage: 1 DF, QD
     Route: 048
     Dates: start: 20140207
  2. COPEGUS [Concomitant]
     Indication: HEPATITIS C
     Dosage: 1200 MG, UNK
     Route: 048
     Dates: start: 20140207
  3. DELIX                              /00885601/ [Concomitant]
     Indication: HYPERTENSION
     Route: 048
  4. KREON                              /00014701/ [Concomitant]
     Indication: DYSPEPSIA
     Route: 048
  5. PANTOZOL                           /01263204/ [Concomitant]
     Indication: DYSPEPSIA
     Route: 048
  6. XIPAMID [Concomitant]
     Indication: ASCITES
     Route: 048
  7. SPIRONOLACTONE [Concomitant]
     Indication: ASCITES
     Route: 048

REACTIONS (5)
  - Pancreatitis [Recovering/Resolving]
  - Diabetes mellitus [Unknown]
  - Peritonitis bacterial [Unknown]
  - Coma hepatic [Not Recovered/Not Resolved]
  - Abdominal pain upper [Recovering/Resolving]
